FAERS Safety Report 25775423 (Version 2)
Quarter: 2025Q3

REPORT INFORMATION
  Report Type: Report from Study
  Country: BR (occurrence: BR)
  Receive Date: 20250909
  Receipt Date: 20250911
  Transmission Date: 20251021
  Serious: Yes (Hospitalization)
  Sender: JOHNSON AND JOHNSON
  Company Number: BR-JNJFOC-20250903407

PATIENT
  Age: 42 Year
  Sex: Female
  Weight: 52 kg

DRUGS (1)
  1. INFLIXIMAB [Suspect]
     Active Substance: INFLIXIMAB
     Indication: Psoriatic arthropathy
     Route: 041

REACTIONS (5)
  - Hysterectomy [Unknown]
  - Post procedural infection [Unknown]
  - Post procedural complication [Unknown]
  - Functional gastrointestinal disorder [Unknown]
  - Drug ineffective [Unknown]

NARRATIVE: CASE EVENT DATE: 20250601
